FAERS Safety Report 9022038 (Version 2)
Quarter: 2014Q1

REPORT INFORMATION
  Report Type: Report from Study
  Country: GB (occurrence: GB)
  Receive Date: 20130118
  Receipt Date: 20140108
  Transmission Date: 20141002
  Serious: No
  Sender: FDA-Public Use
  Company Number: GB-JNJFOC-20130107217

PATIENT
  Age: 69 Year
  Sex: Female

DRUGS (4)
  1. SIMPONI [Suspect]
     Indication: PSORIATIC ARTHROPATHY
     Route: 058
  2. SIMPONI [Suspect]
     Indication: PSORIATIC ARTHROPATHY
     Route: 058
     Dates: start: 20130101, end: 201308
  3. METHOTREXATE [Concomitant]
  4. SULFASALAZINE [Concomitant]

REACTIONS (2)
  - Viral infection [Unknown]
  - Drug ineffective [Unknown]
